FAERS Safety Report 15859172 (Version 1)
Quarter: 2019Q1

REPORT INFORMATION
  Report Type: Spontaneous
  Country: BE (occurrence: BE)
  Receive Date: 20190123
  Receipt Date: 20190123
  Transmission Date: 20190417
  Serious: Yes (Other)
  Sender: FDA-Public Use
  Company Number: BE-TEVA-2019-BE-1002247

PATIENT
  Age: 52 Year
  Sex: Female
  Weight: 57 kg

DRUGS (2)
  1. ESCITALOPRAM [Suspect]
     Active Substance: ESCITALOPRAM OXALATE
     Indication: PANIC ATTACK
     Dosage: 5 MILLIGRAM DAILY;
     Route: 048
     Dates: start: 20181216, end: 20181216
  2. L-THYROXINE CHRISTIAENS 25 UG, TABLET [Concomitant]
     Indication: HYPOTHYROIDISM
     Dosage: MONDAY -TUESDAY - FRIDAY : 25 MICROGRAM/DAY ?WEDNESDAY -SATURDAY -SUNDAY  : 2.25 MICROGRAM/DAY
     Route: 048
     Dates: start: 2014

REACTIONS (3)
  - Syncope [Unknown]
  - Limb discomfort [Unknown]
  - Tremor [Unknown]

NARRATIVE: CASE EVENT DATE: 20181216
